FAERS Safety Report 23302937 (Version 1)
Quarter: 2023Q4

REPORT INFORMATION
  Report Type: Spontaneous
  Country: US (occurrence: US)
  Receive Date: 20231215
  Receipt Date: 20231215
  Transmission Date: 20240109
  Serious: No
  Sender: FDA-Public Use
  Company Number: US-PRIMUS-2023-US-028246

PATIENT
  Age: 55 Year
  Sex: Female

DRUGS (1)
  1. IMPOYZ [Suspect]
     Active Substance: CLOBETASOL PROPIONATE
     Indication: Product used for unknown indication
     Dosage: APPLY TO AFFECTED AREA ON NECK ONCE TO TWICE DAILY
     Route: 061

REACTIONS (2)
  - Application site pain [Recovered/Resolved]
  - Condition aggravated [Recovered/Resolved]
